FAERS Safety Report 18375361 (Version 1)
Quarter: 2020Q4

REPORT INFORMATION
  Report Type: Spontaneous
  Country: US (occurrence: US)
  Receive Date: 20201011
  Receipt Date: 20201011
  Transmission Date: 20210114
  Serious: Yes (Other)
  Sender: FDA-Public Use
  Company Number: None

PATIENT
  Age: 74 Year
  Sex: Male
  Weight: 107 kg

DRUGS (16)
  1. DEXAMETHASONE. [Concomitant]
     Active Substance: DEXAMETHASONE
     Dates: start: 20201009
  2. ASPIRIN 81MG (HOME MED) [Concomitant]
  3. CILOSTAZOL 100MG BID (HOME MED) [Concomitant]
  4. ALBUTEROL INH 2 PUFFS Q4H PRN WHEEZE (HOME MED) [Concomitant]
  5. ATORVASTATIN 20MG (HOME MED) [Concomitant]
  6. ZINC SULFATE 100MG PO BID [Concomitant]
     Dates: start: 20201009
  7. BENZONATE 200MG TID [Concomitant]
     Dates: start: 20201009
  8. MELATONIN 10MG PO QPM [Concomitant]
     Dates: start: 20201009
  9. ASCORBIC ACID 500MG BID [Concomitant]
     Dates: start: 20201009
  10. REMDESIVIR. [Suspect]
     Active Substance: REMDESIVIR
     Indication: COVID-19
     Route: 041
     Dates: start: 20201009, end: 20201011
  11. REMDESIVIR. [Suspect]
     Active Substance: REMDESIVIR
     Indication: HYPOXIA
     Route: 041
     Dates: start: 20201009, end: 20201011
  12. CHOLECALCIFIEROL 25MCG DAILY (HOME MED) [Concomitant]
  13. BUDESONIDE/FORMOTEROL (HOME MED) [Concomitant]
  14. ENOXAPARIN 40MG SC DAILY [Concomitant]
     Dates: start: 20201009
  15. TIOTROPIUM 18CMG INH DAILY (HOME MED) [Concomitant]
  16. FUROSEMIDE 40MG PO PID (HOME MED) [Concomitant]

REACTIONS (3)
  - Ventricular tachycardia [None]
  - Chronic obstructive pulmonary disease [None]
  - Ventricular extrasystoles [None]

NARRATIVE: CASE EVENT DATE: 20201011
